FAERS Safety Report 12251007 (Version 5)
Quarter: 2017Q1

REPORT INFORMATION
  Report Type: Spontaneous
  Country: BR (occurrence: BR)
  Receive Date: 20160409
  Receipt Date: 20170328
  Transmission Date: 20170428
  Serious: Yes (Hospitalization, Other)
  Sender: FDA-Public Use
  Company Number: BR-AMGEN-BRASP2016045099

PATIENT
  Age: 58 Year
  Sex: Female
  Weight: 79 kg

DRUGS (1)
  1. ENBREL [Suspect]
     Active Substance: ETANERCEPT
     Indication: PSORIATIC ARTHROPATHY
     Dosage: 50 MG, WEEKLY(1X/WEEK)
     Route: 065
     Dates: start: 201505

REACTIONS (20)
  - Headache [Unknown]
  - Mass [Unknown]
  - Panic reaction [Not Recovered/Not Resolved]
  - Fear [Not Recovered/Not Resolved]
  - Blindness [Not Recovered/Not Resolved]
  - Eye pain [Unknown]
  - Visual impairment [Unknown]
  - Weight increased [Unknown]
  - Facial paralysis [Unknown]
  - Fall [Unknown]
  - Suicidal ideation [Not Recovered/Not Resolved]
  - Hypoaesthesia [Unknown]
  - Optic nerve injury [Unknown]
  - Cerebrovascular accident [Recovered/Resolved with Sequelae]
  - Ocular hyperaemia [Unknown]
  - Memory impairment [Unknown]
  - Erythema [Unknown]
  - Deafness unilateral [Unknown]
  - Erythropsia [Unknown]
  - Tearfulness [Unknown]

NARRATIVE: CASE EVENT DATE: 201601
